FAERS Safety Report 9848624 (Version 1)
Quarter: 2013Q4

REPORT INFORMATION
  Report Type: Spontaneous
  Country: US (occurrence: None)
  Receive Date: 20131226
  Receipt Date: 20131226
  Transmission Date: 20140711
  Serious: Yes (Hospitalization)
  Sender: FDA-Public Use
  Company Number: PHEH2013US004390

PATIENT
  Sex: Female

DRUGS (2)
  1. VOLTAREN (DICLOFENAC SODIUM) TABLET [Suspect]
  2. VOLTAREN EMULGEL (DICLOFENAC DIETHYLAMINE) [Concomitant]

REACTIONS (3)
  - Gastric ulcer [None]
  - Diarrhoea [None]
  - Vomiting [None]
